FAERS Safety Report 10667936 (Version 2)
Quarter: 2015Q1

REPORT INFORMATION
  Report Type: Report from Study
  Country: JP (occurrence: JP)
  Receive Date: 20141222
  Receipt Date: 20150209
  Transmission Date: 20150720
  Serious: Yes (Hospitalization)
  Sender: FDA-Public Use
  Company Number: JP-SA-2014SA174018

PATIENT
  Age: 77 Year
  Sex: Male
  Weight: 55.7 kg

DRUGS (5)
  1. PLETAAL [Concomitant]
     Active Substance: CILOSTAZOL
     Indication: PERIPHERAL ARTERIAL OCCLUSIVE DISEASE
     Route: 048
     Dates: start: 20130719, end: 20130923
  2. PLAVIX [Suspect]
     Active Substance: CLOPIDOGREL BISULFATE
     Indication: PERIPHERAL ARTERIAL OCCLUSIVE DISEASE
     Route: 048
     Dates: start: 20131029, end: 20131119
  3. PLAVIX [Suspect]
     Active Substance: CLOPIDOGREL BISULFATE
     Indication: PERIPHERAL ARTERIAL OCCLUSIVE DISEASE
     Route: 048
     Dates: start: 20140519, end: 20140805
  4. CERNILTON [Concomitant]
     Indication: PROPHYLAXIS
     Route: 048
     Dates: start: 20040312
  5. HARNAL [Concomitant]
     Active Substance: TAMSULOSIN HYDROCHLORIDE
     Indication: PROPHYLAXIS
     Route: 048
     Dates: start: 20040408

REACTIONS (3)
  - Intermittent claudication [Recovered/Resolved]
  - Peripheral artery stenosis [Recovered/Resolved]
  - Femoral artery occlusion [Recovered/Resolved]

NARRATIVE: CASE EVENT DATE: 20140310
